FAERS Safety Report 7383046-3 (Version None)
Quarter: 2011Q1

REPORT INFORMATION
  Report Type: 
  Country: None (occurrence: None)
  Receive Date: 20110330
  Receipt Date: 20110325
  Transmission Date: 20110831
  Serious: No
  Sender: FDA-Public Use
  Company Number: US-PFIZER INC-2011067477

PATIENT
  Sex: Female
  Weight: 67.12 kg

DRUGS (6)
  1. VESICARE [Concomitant]
     Indication: URINARY INCONTINENCE
     Dosage: 10 MG, 1X/DAY
  2. CELEXA [Concomitant]
     Indication: DEPRESSION
     Dosage: 20 MG, 1X/DAY
  3. PROCHLORPERAZINE [Concomitant]
     Indication: GASTRIC DISORDER
     Dosage: 10 MG, 3X/DAY
  4. SKELAXIN [Concomitant]
     Indication: MUSCLE RELAXANT THERAPY
     Dosage: 800 MG, UNK
  5. ACIPHEX [Concomitant]
     Indication: GASTRIC ULCER
     Dosage: 20 MG, 1X/DAY
  6. CELEBREX [Suspect]
     Indication: PAIN
     Dosage: 100 MG, 1X/DAY
     Route: 048
     Dates: start: 20110324

REACTIONS (1)
  - INSOMNIA [None]
